FAERS Safety Report 6469069-7 (Version None)
Quarter: 2009Q4

REPORT INFORMATION
  Report Type: 
  Country: None (occurrence: None)
  Receive Date: 20091119
  Receipt Date: 20090827
  Transmission Date: 20100525
  Serious: No
  Sender: FDA-Public Use
  Company Number: WAES 0908USA04744

PATIENT
  Age: 62 Year
  Sex: Female

DRUGS (9)
  1. JANUVIA [Suspect]
     Indication: DIABETES MELLITUS
     Dosage: 100 MG/DAILY/PO
     Route: 048
     Dates: start: 20090101
  2. GLUCOPHAGE [Concomitant]
  3. PLAVIX [Concomitant]
  4. SYNTHROID [Concomitant]
  5. TRICOR [Concomitant]
  6. ALPRAZOLAM [Concomitant]
  7. CARVEDILOL [Concomitant]
  8. NITROGLYCERIN [Concomitant]
  9. VERAPAMIL [Concomitant]

REACTIONS (3)
  - EYE BURNS [None]
  - LACRIMATION INCREASED [None]
  - PAROSMIA [None]
